FAERS Safety Report 25904029 (Version 1)
Quarter: 2025Q4

REPORT INFORMATION
  Report Type: Spontaneous
  Country: CN (occurrence: CN)
  Receive Date: 20251010
  Receipt Date: 20251010
  Transmission Date: 20260118
  Serious: Yes (Hospitalization)
  Sender: ROCHE
  Company Number: CN-CHEPLA-2025011480

PATIENT
  Age: 62 Year
  Sex: Female
  Weight: 49.5 kg

DRUGS (7)
  1. BEVACIZUMAB [Suspect]
     Active Substance: BEVACIZUMAB
     Indication: Rectal cancer
     Dosage: APPROVAL NO. GYZZ S20200013
     Route: 042
     Dates: start: 20250818, end: 20250818
  2. BEVACIZUMAB [Suspect]
     Active Substance: BEVACIZUMAB
     Dosage: APPROVAL NO. GYZZ S20200013
     Route: 042
     Dates: start: 20250818, end: 20250818
  3. CAPECITABINE [Suspect]
     Active Substance: CAPECITABINE
     Indication: Rectal cancer
     Dosage: APPROVAL NO. GYZZ H20073023
     Route: 048
     Dates: start: 20250818, end: 20250831
  4. CAPECITABINE [Suspect]
     Active Substance: CAPECITABINE
     Dosage: APPROVAL NO. GYZZ H20073023
     Route: 048
     Dates: start: 20250818, end: 20250831
  5. OXALIPLATIN [Suspect]
     Active Substance: OXALIPLATIN
     Indication: Rectal cancer
     Dosage: APPROVAL NO. GYZZ J20150117
     Route: 042
     Dates: start: 20250818, end: 20250818
  6. SODIUM CHLORIDE [Concomitant]
     Active Substance: SODIUM CHLORIDE
     Indication: Medication dilution
     Dosage: APPROVAL NO. GYZZ H37020765
     Route: 042
     Dates: start: 20250818, end: 20250818
  7. DEXTROSE [Concomitant]
     Active Substance: DEXTROSE MONOHYDRATE
     Indication: Medication dilution
     Dosage: APPROVAL NO. GYZZ H37020771
     Route: 042
     Dates: start: 20250818, end: 20250818

REACTIONS (1)
  - Myelosuppression [Recovering/Resolving]

NARRATIVE: CASE EVENT DATE: 20250917
